FAERS Safety Report 24654922 (Version 1)
Quarter: 2024Q4

REPORT INFORMATION
  Report Type: Spontaneous
  Country: US (occurrence: US)
  Receive Date: 20241122
  Receipt Date: 20241122
  Transmission Date: 20250115
  Serious: No
  Sender: MERCK
  Company Number: US-009507513-2410USA012787

PATIENT
  Sex: Female

DRUGS (5)
  1. WINREVAIR [Suspect]
     Active Substance: SOTATERCEPT-CSRK
     Dosage: UNK
     Dates: start: 202408
  2. REMODULIN [Suspect]
     Active Substance: TREPROSTINIL
     Indication: Pulmonary arterial hypertension
     Dosage: FREQUENCY CONTINUING
     Route: 041
     Dates: start: 202406
  3. REMODULIN [Suspect]
     Active Substance: TREPROSTINIL
     Dosage: 0.024 MICROGRAM PER KILOGRAM, FREQUENCY CONTINUING
     Route: 041
     Dates: start: 2024
  4. TADALAFIL [Concomitant]
     Active Substance: TADALAFIL
  5. LETAIRIS [Concomitant]
     Active Substance: AMBRISENTAN

REACTIONS (4)
  - Pain in extremity [Recovering/Resolving]
  - Fatigue [Unknown]
  - Dizziness [Unknown]
  - Mood swings [Unknown]

NARRATIVE: CASE EVENT DATE: 20240101
